FAERS Safety Report 23913079 (Version 2)
Quarter: 2024Q2

REPORT INFORMATION
  Report Type: Spontaneous
  Country: US (occurrence: US)
  Receive Date: 20240529
  Receipt Date: 20240530
  Transmission Date: 20240715
  Serious: No
  Sender: FDA-Public Use
  Company Number: US-JNJFOC-20240514259

PATIENT

DRUGS (2)
  1. MAXIMUM STRENGTH PEPCID AC ICY COOL MINT [Suspect]
     Active Substance: FAMOTIDINE
     Indication: Gastrointestinal disorder
     Route: 065
  2. MAXIMUM STRENGTH PEPCID AC ICY COOL MINT [Suspect]
     Active Substance: FAMOTIDINE
     Indication: Product used for unknown indication

REACTIONS (2)
  - Product use in unapproved indication [Unknown]
  - Therapeutic response unexpected [Unknown]
